FAERS Safety Report 7926364 (Version 6)
Quarter: 2012Q4

REPORT INFORMATION
  Report Type: 
  Country: US (occurrence: US)
  Receive Date: 20110502
  Receipt Date: 20121018
  Transmission Date: 20130627
  Serious: Yes (Hospitalization, Other)
  Sender: FDA-Public Use
  Company Number: US-ASTRAZENECA-2011SE23291

PATIENT
  Age: 69 Year
  Sex: Female

DRUGS (1)
  1. ARIMIDEX [Suspect]
     Route: 048

REACTIONS (11)
  - Fall [Unknown]
  - Rectal obstruction [Unknown]
  - Fallopian tube cancer [Unknown]
  - Ovarian cancer [Unknown]
  - Deafness unilateral [Unknown]
  - Malaise [Unknown]
  - Adverse event [Unknown]
  - Wrist fracture [Unknown]
  - Foot fracture [Unknown]
  - Upper limb fracture [Unknown]
  - Diarrhoea [Unknown]
